FAERS Safety Report 6182458-3 (Version None)
Quarter: 2009Q2

REPORT INFORMATION
  Report Type: 
  Country: None (occurrence: None)
  Receive Date: 20090507
  Receipt Date: 20090428
  Transmission Date: 20091009
  Serious: Yes (Other)
  Sender: FDA-Public Use
  Company Number: BR-ROCHE-630304

PATIENT
  Sex: Male
  Weight: 62 kg

DRUGS (3)
  1. RIVOTRIL [Suspect]
     Indication: SEDATIVE THERAPY
     Dosage: DOSE REPORTED AS: 0.5 MG/ TABLET
     Route: 048
     Dates: start: 20050101, end: 20050101
  2. RIVOTRIL [Suspect]
     Dosage: DOSE REPORTED AS 2 MG/ TABLET, LOT NUMBER RJ0970
     Route: 048
     Dates: start: 20050101
  3. VELAXIN [Concomitant]
     Dosage: DRUG: VENLAXIN, STOP DATE: 2008/ 2009
     Route: 048

REACTIONS (9)
  - FATIGUE [None]
  - FEELING ABNORMAL [None]
  - GAIT DISTURBANCE [None]
  - INSOMNIA [None]
  - LETHARGY [None]
  - PAIN IN EXTREMITY [None]
  - SYNCOPE [None]
  - THINKING ABNORMAL [None]
  - TREMOR [None]
